FAERS Safety Report 7361183-7 (Version None)
Quarter: 2011Q1

REPORT INFORMATION
  Report Type: 
  Country: None (occurrence: None)
  Receive Date: 20110318
  Receipt Date: 20110311
  Transmission Date: 20110831
  Serious: Yes (Hospitalization)
  Sender: FDA-Public Use
  Company Number: JP-B.I. PHARMACEUTICALS,INC./RIDGEFIELD-2011-BP-02189NB

PATIENT
  Sex: Female
  Weight: 46 kg

DRUGS (10)
  1. DOGMATYL [Suspect]
     Dosage: 100 MG
     Route: 048
  2. RENIVACE [Suspect]
     Dosage: 10 MG
  3. ERISPAN [Suspect]
  4. PLAVIX [Concomitant]
     Dosage: 75 MG
     Route: 048
  5. CATAPRES [Suspect]
     Indication: ESSENTIAL HYPERTENSION
     Dosage: 225 MCG
     Route: 048
     Dates: start: 20110207
  6. ENCHININ [Concomitant]
     Dosage: 1 MG
     Route: 048
  7. AMLODIPINE [Suspect]
     Dosage: 5 MG
  8. AMLODIPINE [Concomitant]
     Dosage: 5 MG
     Route: 048
  9. ERISPAN [Concomitant]
     Dosage: 0.5 MG
     Route: 048
  10. KENTAN [Concomitant]
     Dosage: 60 MG
     Route: 048

REACTIONS (3)
  - VOMITING [None]
  - TREMOR [None]
  - NAUSEA [None]
